FAERS Safety Report 20707660 (Version 2)
Quarter: 2022Q2

REPORT INFORMATION
  Report Type: Spontaneous
  Country: US (occurrence: US)
  Receive Date: 20220413
  Receipt Date: 20220506
  Transmission Date: 20220720
  Serious: No
  Sender: FDA-Public Use
  Company Number: US-Blueprint Medicines Corporation-20

PATIENT
  Age: 41 Year
  Sex: Female

DRUGS (2)
  1. AYVAKIT [Suspect]
     Active Substance: AVAPRITINIB
     Indication: Mast cell activation syndrome
     Route: 048
     Dates: start: 20210824
  2. AYVAKIT [Suspect]
     Active Substance: AVAPRITINIB

REACTIONS (5)
  - Tryptase decreased [Unknown]
  - Swelling [Unknown]
  - Adverse drug reaction [Recovering/Resolving]
  - Product dose omission issue [Unknown]
  - Off label use [Unknown]
